FAERS Safety Report 7235449-5 (Version None)
Quarter: 2011Q1

REPORT INFORMATION
  Report Type: 
  Country: None (occurrence: None)
  Receive Date: 20110120
  Receipt Date: 20110114
  Transmission Date: 20110831
  Serious: Yes (Hospitalization)
  Sender: FDA-Public Use
  Company Number: US-SANOFI-AVENTIS-2010SA073823

PATIENT
  Age: 62 Year
  Sex: Male
  Weight: 91 kg

DRUGS (9)
  1. SOLOSTAR [Suspect]
     Dates: start: 20080101
  2. JANUVIA [Concomitant]
  3. CRESTOR [Concomitant]
  4. METFORMIN [Concomitant]
  5. LANTUS [Suspect]
     Dosage: DOSE:35 UNIT(S)
     Route: 058
     Dates: start: 20080101
  6. LANTUS [Suspect]
     Dosage: DOSE:24 UNIT(S)
     Route: 058
     Dates: start: 20101027
  7. NEXIUM [Concomitant]
  8. SOLOSTAR [Suspect]
     Dates: start: 20080101
  9. NIASPAN [Concomitant]

REACTIONS (1)
  - KNEE OPERATION [None]
